FAERS Safety Report 22285600 (Version 1)
Quarter: 2023Q2

REPORT INFORMATION
  Report Type: Spontaneous
  Country: JP (occurrence: None)
  Receive Date: 20230504
  Receipt Date: 20230504
  Transmission Date: 20230722
  Serious: Yes (Hospitalization, Other)
  Sender: FDA-Public Use
  Company Number: JP-Merck Healthcare KGaA-9151902

PATIENT
  Age: 46 Year
  Sex: Male
  Weight: 110 kg

DRUGS (4)
  1. METGLUCO [Suspect]
     Active Substance: METFORMIN HYDROCHLORIDE
     Indication: Suicide attempt
     Route: 048
  2. METGLUCO [Suspect]
     Active Substance: METFORMIN HYDROCHLORIDE
     Dosage: SINGLE
     Route: 048
  3. REPAGLINIDE [Suspect]
     Active Substance: REPAGLINIDE
     Indication: Suicide attempt
     Route: 048
  4. REPAGLINIDE [Suspect]
     Active Substance: REPAGLINIDE
     Dosage: SINGLE
     Route: 048

REACTIONS (9)
  - Renal impairment [Recovering/Resolving]
  - Hyperkalaemia [Unknown]
  - Blood pressure increased [Recovering/Resolving]
  - Hyperglycaemia [Unknown]
  - Suicide attempt [Unknown]
  - Adjustment disorder with depressed mood [Unknown]
  - Lactic acidosis [Recovering/Resolving]
  - Overdose [Unknown]
  - Hepatic steatosis [Unknown]
